FAERS Safety Report 10051830 (Version 2)
Quarter: 2014Q2

REPORT INFORMATION
  Report Type: Spontaneous
  Country: FI (occurrence: FI)
  Receive Date: 20140402
  Receipt Date: 20140416
  Transmission Date: 20141212
  Serious: Yes (Other)
  Sender: FDA-Public Use
  Company Number: FI-ROCHE-1369513

PATIENT
  Age: 48 Year
  Sex: Female

DRUGS (15)
  1. KADCYLA [Suspect]
     Indication: BREAST CANCER METASTATIC
     Dosage: TOTAL DOSE 252MG
     Route: 042
     Dates: start: 20140114
  2. KADCYLA [Suspect]
     Route: 042
     Dates: start: 20140207
  3. KADCYLA [Suspect]
     Dosage: TOTAL DOSE: 160MG
     Route: 042
  4. HERCEPTIN [Suspect]
     Indication: BREAST CANCER METASTATIC
     Route: 065
     Dates: start: 2012, end: 201302
  5. HERCEPTIN [Suspect]
     Route: 065
     Dates: start: 201307
  6. HERCEPTIN [Suspect]
     Route: 065
     Dates: start: 201312
  7. AVASTIN [Suspect]
     Indication: BREAST CANCER METASTATIC
     Route: 042
     Dates: start: 201307
  8. XELODA [Suspect]
     Indication: BREAST CANCER METASTATIC
     Dosage: 3500MG DAILY (200MG IN THE MORNING, 1500MG IN THE EVENING) FOR TWO WEEKS, FOLLOWED BY A ONE WEEK TRE
     Route: 065
     Dates: start: 201307
  9. CYCLOPHOSPHAMIDE [Concomitant]
     Indication: BREAST CANCER METASTATIC
     Route: 065
     Dates: start: 2012, end: 201302
  10. CYCLOPHOSPHAMIDE [Concomitant]
     Route: 065
     Dates: start: 201312
  11. EPIRUBICIN [Concomitant]
     Indication: BREAST CANCER METASTATIC
     Route: 065
     Dates: start: 2012, end: 201302
  12. FLUOROURACIL [Concomitant]
     Indication: BREAST CANCER METASTATIC
     Route: 065
     Dates: start: 2012, end: 201302
  13. TYVERB [Concomitant]
     Indication: BREAST CANCER METASTATIC
     Route: 065
     Dates: start: 2012, end: 201302
  14. CISPLATIN [Concomitant]
     Indication: BREAST CANCER METASTATIC
     Route: 065
     Dates: start: 201302
  15. METHOTREXATE [Concomitant]
     Indication: BREAST CANCER METASTATIC
     Route: 065
     Dates: start: 201312

REACTIONS (9)
  - Disease progression [Unknown]
  - Metastases to central nervous system [Unknown]
  - Metastases to skin [Unknown]
  - Skin disorder [Unknown]
  - Infection [Unknown]
  - No therapeutic response [Unknown]
  - Pneumonia [Unknown]
  - Thrombocytopenia [Unknown]
  - Urinary tract infection [Unknown]
